FAERS Safety Report 4918230-9 (Version None)
Quarter: 2006Q1

REPORT INFORMATION
  Report Type: 
  Country: None (occurrence: None)
  Receive Date: 20060215
  Receipt Date: 20060202
  Transmission Date: 20060701
  Serious: Yes (Other)
  Sender: FDA-Public Use
  Company Number: 230623K06USA

PATIENT
  Age: 45 Year
  Sex: Female

DRUGS (2)
  1. AVONEX [Suspect]
     Dosage: 30 MCG, 1 IN 1 WEEKS, INTRAMUSCULAR
     Route: 030
     Dates: start: 20040901
  2. REBIF [Suspect]
     Indication: MULTIPLE SCLEROSIS
     Dates: start: 20030818, end: 20040816

REACTIONS (1)
  - OVARIAN CANCER [None]
